FAERS Safety Report 14784982 (Version 1)
Quarter: 2018Q2

REPORT INFORMATION
  Report Type: Spontaneous
  Country: US (occurrence: US)
  Receive Date: 20180413
  Receipt Date: 20180413
  Transmission Date: 20180711
  Serious: Yes (Hospitalization)
  Sender: FDA-Public Use
  Company Number: None

PATIENT
  Age: 53 Year
  Sex: Female

DRUGS (11)
  1. LISINOPRIL. [Suspect]
     Active Substance: LISINOPRIL
     Dates: start: 20130121, end: 20171012
  2. LOPERAMIDE 2MG QID [Concomitant]
  3. METFORMIN 500MG BID [Concomitant]
  4. THIAMINE 100MG DAILY [Concomitant]
  5. NOVOLOG 5 UNITS TID [Concomitant]
  6. PANTOPRAZOLE 40MG DAILY [Concomitant]
  7. GABAPENTIN 100MG TID [Concomitant]
  8. IBUPROFEN 600MG Q6H PRN PAIN [Concomitant]
  9. GUAIFENESIN 600MG BID [Concomitant]
  10. AMLODIPINE [Concomitant]
     Active Substance: AMLODIPINE BESYLATE
  11. LEVEMIR 15 UNITS NIGHTLY [Concomitant]

REACTIONS (9)
  - Nausea [None]
  - Vomiting [None]
  - Acute kidney injury [None]
  - Abdominal pain [None]
  - Hypotension [None]
  - Angioedema [None]
  - Diarrhoea [None]
  - Ascites [None]
  - Hyperkalaemia [None]

NARRATIVE: CASE EVENT DATE: 20171012
